FAERS Safety Report 8992307 (Version 1)
Quarter: 2012Q4

REPORT INFORMATION
  Report Type: 
  Country: US (occurrence: US)
  Receive Date: 20121231
  Receipt Date: 20121231
  Transmission Date: 20130627
  Serious: Yes (Other)
  Sender: FDA-Public Use
  Company Number: US-VERTEX PHARMACEUTICALS INC.-2012-026715

PATIENT
  Age: 60 Year
  Sex: Female

DRUGS (6)
  1. VX-950 (TELAPREVIR) [Suspect]
     Indication: HEPATITIS C
     Dosage: 750 mg, tid
     Route: 048
     Dates: start: 20121111
  2. RIBAPAK [Suspect]
     Indication: HEPATITIS C
     Dosage: 600 mg, bid
     Route: 048
     Dates: start: 20121111, end: 201212
  3. PEGASYS [Suspect]
     Indication: HEPATITIS C
     Dosage: 180 ?g, qw
     Route: 058
     Dates: start: 20121111
  4. CALTRATE                           /00944201/ [Concomitant]
     Dosage: 1 DF, qd
     Route: 048
  5. EXFORGE [Concomitant]
     Dosage: 1 DF, qd
     Route: 048
  6. ALPRAZOLAM [Concomitant]
     Dosage: 1 DF, prn
     Route: 048

REACTIONS (1)
  - Anaemia [Unknown]
